FAERS Safety Report 8303906-6 (Version None)
Quarter: 2012Q2

REPORT INFORMATION
  Report Type: 
  Country: None (occurrence: None)
  Receive Date: 20120420
  Receipt Date: 20120420
  Transmission Date: 20120825
  Serious: Yes (Hospitalization)
  Sender: FDA-Public Use
  Company Number: None

PATIENT
  Sex: Male

DRUGS (1)
  1. ENBREL [Suspect]
     Dosage: 50MG ONCE/WEEK SQ
     Route: 058
     Dates: start: 20090202, end: 20120123

REACTIONS (5)
  - DIARRHOEA [None]
  - DIZZINESS [None]
  - VOMITING [None]
  - FATIGUE [None]
  - NAUSEA [None]
